FAERS Safety Report 6217031-1 (Version None)
Quarter: 2009Q2

REPORT INFORMATION
  Report Type: 
  Country: None (occurrence: None)
  Receive Date: 20090604
  Receipt Date: 20090520
  Transmission Date: 20091009
  Serious: Yes (Hospitalization)
  Sender: FDA-Public Use
  Company Number: 230034M09DEU

PATIENT
  Age: 58 Year
  Sex: Female

DRUGS (1)
  1. REBIF [Suspect]
     Indication: MULTIPLE SCLEROSIS
     Dosage: 44, 3 IN 1 WEEKS

REACTIONS (19)
  - ASTHENIA [None]
  - BACK PAIN [None]
  - BALANCE DISORDER [None]
  - BRONCHITIS [None]
  - DISORIENTATION [None]
  - GAIT DISTURBANCE [None]
  - HEADACHE [None]
  - HYPERTENSION [None]
  - INFLUENZA LIKE ILLNESS [None]
  - INSOMNIA [None]
  - LOWER RESPIRATORY TRACT INFECTION [None]
  - NAUSEA [None]
  - PHARYNGITIS STREPTOCOCCAL [None]
  - PNEUMONIA [None]
  - SPEECH DISORDER [None]
  - VERTIGO [None]
  - VOMITING [None]
  - WHITE BLOOD CELL COUNT DECREASED [None]
  - WHITE BLOOD CELL COUNT INCREASED [None]
